FAERS Safety Report 8042821 (Version 2)
Quarter: 2012Q4

REPORT INFORMATION
  Report Type: 
  Country: US (occurrence: US)
  Receive Date: 20110718
  Receipt Date: 20121108
  Transmission Date: 20130627
  Serious: No
  Sender: FDA-Public Use
  Company Number: US-B.I. PHARMACEUTICALS,INC./RIDGEFIELD-2011-BP-06267BP

PATIENT
  Age: 76 Year
  Sex: Female

DRUGS (3)
  1. PRADAXA [Suspect]
     Indication: ATRIAL FIBRILLATION
     Dosage: 300 mg
     Route: 048
     Dates: start: 20110225
  2. METOPROLOL [Concomitant]
     Indication: TACHYCARDIA
     Dosage: 25 mg
     Route: 048
     Dates: start: 2004
  3. METOPROLOL [Concomitant]
     Indication: ATRIAL FIBRILLATION

REACTIONS (4)
  - Eye haemorrhage [Not Recovered/Not Resolved]
  - Ocular hyperaemia [Not Recovered/Not Resolved]
  - Arthropod bite [Not Recovered/Not Resolved]
  - Lyme disease [Not Recovered/Not Resolved]
